FAERS Safety Report 6790214-8 (Version None)
Quarter: 2010Q2

REPORT INFORMATION
  Report Type: 
  Country: None (occurrence: None)
  Receive Date: 20100624
  Receipt Date: 20100615
  Transmission Date: 20101027
  Serious: Yes (Other)
  Sender: FDA-Public Use
  Company Number: BR-ASTRAZENECA-2010SE28368

PATIENT
  Age: 81 Year
  Sex: Female
  Weight: 86 kg

DRUGS (2)
  1. ATACAND [Suspect]
     Indication: HYPERTENSION
     Route: 048
     Dates: start: 20100301, end: 20100615
  2. CONCOR [Concomitant]
     Dosage: DAILY
     Route: 048
     Dates: start: 20090801, end: 20100615

REACTIONS (3)
  - HYPOTENSION [None]
  - PRURITUS [None]
  - SYNCOPE [None]
